FAERS Safety Report 7780356-2 (Version None)
Quarter: 2011Q3

REPORT INFORMATION
  Report Type: 
  Country: None (occurrence: None)
  Receive Date: 20110927
  Receipt Date: 20110919
  Transmission Date: 20111222
  Serious: Yes (Other)
  Sender: FDA-Public Use
  Company Number: CN-BAYER-201011883GPV

PATIENT
  Age: 61 Year
  Sex: Male
  Weight: 51 kg

DRUGS (5)
  1. ERLOTINIB HYDROCHLORIDE [Suspect]
     Indication: HEPATIC NEOPLASM MALIGNANT
  2. SORAFENIB (RAF KINASE INHIBITOR) [Suspect]
     Indication: HEPATIC NEOPLASM MALIGNANT
  3. VITAMIN B COMPLEX CAP [Concomitant]
     Indication: SUPPLEMENTATION THERAPY
     Dosage: DAILY DOSE 200 MG
     Dates: start: 20091203, end: 20091204
  4. SHEN MAI [Concomitant]
     Indication: THERAPEUTIC PROCEDURE
     Dosage: DAILY DOSE 50 ML
     Dates: start: 20091203, end: 20091204
  5. ASCORBIC ACID [Concomitant]
     Indication: VITAMIN SUPPLEMENTATION
     Dosage: DAILY DOSE 2 G
     Dates: start: 20091203, end: 20091204

REACTIONS (1)
  - HYPOKALAEMIA [None]
